FAERS Safety Report 17985947 (Version 4)
Quarter: 2020Q3

REPORT INFORMATION
  Report Type: Spontaneous
  Country: CZ (occurrence: CZ)
  Receive Date: 20200707
  Receipt Date: 20200926
  Transmission Date: 20201103
  Serious: Yes (Hospitalization)
  Sender: FDA-Public Use
  Company Number: CZ-LUPIN PHARMACEUTICALS INC.-2020-03093

PATIENT
  Age: 14 Year
  Sex: Female

DRUGS (21)
  1. QUETIAPINE FUMARATE. [Suspect]
     Active Substance: QUETIAPINE FUMARATE
     Indication: DEPRESSION
     Dosage: 25 MILLIGRAM
     Route: 065
     Dates: end: 201810
  2. MIRTAZAPINE. [Suspect]
     Active Substance: MIRTAZAPINE
     Indication: HYPOSOMNIA
     Dosage: 45 MILLIGRAM, QD
     Route: 065
     Dates: start: 201812
  3. VALPROIC ACID. [Suspect]
     Active Substance: VALPROIC ACID
     Indication: BIPOLAR DISORDER
     Dosage: 800 MILLIGRAM, QD (SUBSEQUENTLY RESTARTED AT 800MG AND THEN 1000MG)
     Route: 065
     Dates: start: 201812
  4. RISPERIDONE. [Concomitant]
     Active Substance: RISPERIDONE
     Indication: HYPOMANIA
  5. ARIPIPRAZOLE. [Concomitant]
     Active Substance: ARIPIPRAZOLE
     Indication: BIPOLAR DISORDER
     Dosage: 10 MILLIGRAM, UNK
     Route: 065
     Dates: start: 201812
  6. VENLAFAXINE [Concomitant]
     Active Substance: VENLAFAXINE HYDROCHLORIDE
     Indication: BIPOLAR DISORDER
     Dosage: 75 MILLIGRAM, QD
     Route: 065
     Dates: start: 201801
  7. VENLAFAXINE [Concomitant]
     Active Substance: VENLAFAXINE HYDROCHLORIDE
     Indication: DEPRESSION
     Dosage: 50 MILLIGRAM, QD
     Route: 065
     Dates: start: 201805
  8. LITHIUM. [Concomitant]
     Active Substance: LITHIUM
     Indication: DEPRESSION
     Dosage: 1050 MILLIGRAM (DURING THE 3RD WEEK OF HOSPITALISATION)
     Route: 065
     Dates: start: 2018
  9. LITHIUM. [Concomitant]
     Active Substance: LITHIUM
     Indication: BIPOLAR DISORDER
     Dosage: 1200 MILLIGRAM, QD
     Route: 065
     Dates: start: 201812
  10. QUETIAPINE FUMARATE. [Suspect]
     Active Substance: QUETIAPINE FUMARATE
     Indication: HYPOMANIA
     Dosage: 37.5 MILLIGRAM
     Route: 065
     Dates: start: 201805
  11. SERTRALINE [Suspect]
     Active Substance: SERTRALINE HYDROCHLORIDE
     Dosage: 75 MILLIGRAM, QD
     Route: 065
     Dates: start: 201710, end: 201801
  12. OLANZAPINE. [Suspect]
     Active Substance: OLANZAPINE
     Indication: BIPOLAR DISORDER
  13. VALPROIC ACID. [Suspect]
     Active Substance: VALPROIC ACID
     Dosage: 1000 MILLIGRAM, UNK
     Route: 065
  14. RISPERIDONE. [Concomitant]
     Active Substance: RISPERIDONE
     Indication: PSYCHOMOTOR HYPERACTIVITY
     Dosage: 0.5 MILLIGRAM, UNK
     Route: 065
     Dates: start: 201708, end: 201710
  15. OLANZAPINE. [Suspect]
     Active Substance: OLANZAPINE
     Indication: DEPRESSION
     Dosage: 5 MILLIGRAM, UNK (DURING THE 3RD WEEK OF HOSPITALISATION)
     Route: 065
     Dates: start: 2018, end: 201812
  16. ARIPIPRAZOLE. [Concomitant]
     Active Substance: ARIPIPRAZOLE
     Indication: DEPRESSION
     Dosage: 5 MILLIGRAM, UNK
     Route: 065
     Dates: start: 201710
  17. VENLAFAXINE [Concomitant]
     Active Substance: VENLAFAXINE HYDROCHLORIDE
     Dosage: 150 MILLIGRAM, QD
     Route: 065
     Dates: end: 201810
  18. RISPERIDONE. [Concomitant]
     Active Substance: RISPERIDONE
     Indication: INSOMNIA
  19. CLONAZEPAM. [Concomitant]
     Active Substance: CLONAZEPAM
     Indication: DEPRESSION
     Dosage: UNK
     Route: 065
     Dates: start: 2018, end: 2018
  20. SERTRALINE [Suspect]
     Active Substance: SERTRALINE HYDROCHLORIDE
     Indication: DEPRESSION
     Dosage: 50 MILLIGRAM, QD
     Route: 065
     Dates: start: 201706
  21. MIRTAZAPINE. [Suspect]
     Active Substance: MIRTAZAPINE
     Dosage: 30 MILLIGRAM, QD
     Route: 065

REACTIONS (5)
  - Increased appetite [Recovered/Resolved]
  - Hypotension [Recovered/Resolved]
  - Therapeutic response shortened [Unknown]
  - Weight increased [Recovered/Resolved]
  - Fatigue [Recovered/Resolved]

NARRATIVE: CASE EVENT DATE: 2018
